FAERS Safety Report 17584850 (Version 1)
Quarter: 2020Q1

REPORT INFORMATION
  Report Type: Spontaneous
  Country: US (occurrence: US)
  Receive Date: 20200325
  Receipt Date: 20200325
  Transmission Date: 20200409
  Serious: Yes (Death)
  Sender: FDA-Public Use
  Company Number: None

PATIENT
  Age: 81 Year
  Sex: Female
  Weight: 45.4 kg

DRUGS (4)
  1. CLOPIDOGREL [Suspect]
     Active Substance: CLOPIDOGREL BISULFATE
     Indication: CEREBROVASCULAR ACCIDENT
     Route: 049
     Dates: end: 20200218
  2. ASPIRIN 81MG DAILY [Suspect]
     Active Substance: ASPIRIN
     Dates: end: 20200218
  3. WARFARIN [Suspect]
     Active Substance: WARFARIN
     Indication: ATRIAL FIBRILLATION
     Dosage: ?          OTHER FREQUENCY:1MG MWF;?
     Route: 048
     Dates: end: 20200218
  4. WARFARIN [Suspect]
     Active Substance: WARFARIN
     Indication: CEREBROVASCULAR ACCIDENT
     Dosage: ?          OTHER FREQUENCY:1MG MWF;?
     Route: 048
     Dates: end: 20200218

REACTIONS (4)
  - Fall [None]
  - Unresponsive to stimuli [None]
  - Head injury [None]
  - Subdural haemorrhage [None]

NARRATIVE: CASE EVENT DATE: 20200218
